FAERS Safety Report 25872503 (Version 1)
Quarter: 2025Q4

REPORT INFORMATION
  Report Type: Spontaneous
  Country: GB (occurrence: GB)
  Receive Date: 20251002
  Receipt Date: 20251002
  Transmission Date: 20260117
  Serious: Yes (Disabling, Other)
  Sender: AUROBINDO
  Company Number: GB-MHRA-MED-202509180736219940-YGKJL

PATIENT
  Age: 54 Year
  Sex: Female
  Weight: 101 kg

DRUGS (1)
  1. CETIRIZINE [Suspect]
     Active Substance: CETIRIZINE HYDROCHLORIDE
     Indication: Hormone replacement therapy
     Dosage: 10 MILLIGRAM, DAILY (10MG DAILY)
     Route: 065
     Dates: start: 20240901

REACTIONS (1)
  - Pruritus [Not Recovered/Not Resolved]

NARRATIVE: CASE EVENT DATE: 20250828
